FAERS Safety Report 5702058-6 (Version None)
Quarter: 2008Q2

REPORT INFORMATION
  Report Type: 
  Country: None (occurrence: None)
  Receive Date: 20080411
  Receipt Date: 20080208
  Transmission Date: 20081010
  Serious: No
  Sender: FDA-Public Use
  Company Number: US-ABBOTT-07P-163-0373288-00

PATIENT
  Sex: Female
  Weight: 50.848 kg

DRUGS (8)
  1. DEPAKOTE [Suspect]
     Indication: BIPOLAR DISORDER
     Route: 048
     Dates: start: 20050101, end: 20061101
  2. DEPAKOTE [Suspect]
     Indication: AFFECTIVE DISORDER
     Dates: start: 20070401, end: 20070701
  3. SERTRALINE [Concomitant]
     Indication: DEPRESSION
     Route: 048
  4. QUETIAPINE FUMARATE [Concomitant]
     Indication: DEPRESSION
     Route: 048
  5. MYCOPHENOLATE MOFETIL [Concomitant]
     Indication: MULTIPLE SCLEROSIS
     Route: 048
  6. VIBROMYCIN [Concomitant]
     Indication: DRUG USE FOR UNKNOWN INDICATION
     Route: 048
  7. VALIUM [Concomitant]
     Indication: ANXIETY
     Route: 048
  8. SELCEFT [Concomitant]
     Indication: DRUG USE FOR UNKNOWN INDICATION

REACTIONS (1)
  - ALOPECIA [None]
